FAERS Safety Report 7180416-3 (Version None)
Quarter: 2010Q4

REPORT INFORMATION
  Report Type: 
  Country: None (occurrence: None)
  Receive Date: 20101221
  Receipt Date: 20101214
  Transmission Date: 20110411
  Serious: Yes (Life-Threatening)
  Sender: FDA-Public Use
  Company Number: B0688990A

PATIENT
  Age: 21 Year
  Sex: Female
  Weight: 85 kg

DRUGS (4)
  1. AUGMENTIN '125' [Suspect]
     Route: 042
     Dates: start: 20101126, end: 20101126
  2. RAMIPRIL [Concomitant]
  3. FENTANYL-100 [Concomitant]
  4. PARECOXIB SODIUM [Concomitant]

REACTIONS (1)
  - BRONCHOSPASM [None]
